FAERS Safety Report 6368408-5 (Version None)
Quarter: 2009Q3

REPORT INFORMATION
  Report Type: 
  Country: None (occurrence: None)
  Receive Date: 20090922
  Receipt Date: 20090909
  Transmission Date: 20100115
  Serious: No
  Sender: FDA-Public Use
  Company Number: US-B.I. PHARMACEUTICALS,INC./RIDGEFIELD-2009-BP-09602BP

PATIENT
  Age: 59 Year
  Sex: Male

DRUGS (8)
  1. SPIRIVA [Suspect]
     Indication: CHRONIC OBSTRUCTIVE PULMONARY DISEASE
     Dosage: 18 MCG
     Route: 055
     Dates: start: 20090601, end: 20090701
  2. ADVAIR HFA [Concomitant]
     Indication: CHRONIC OBSTRUCTIVE PULMONARY DISEASE
     Route: 055
     Dates: start: 20050101
  3. LANOXIN [Concomitant]
     Indication: CARDIAC DISORDER
     Dosage: 0.25 MG
     Route: 048
     Dates: start: 20050101
  4. CARTIA XT [Concomitant]
     Indication: CARDIAC DISORDER
     Dosage: 120 MG
     Route: 048
     Dates: start: 20050101
  5. COMBIVENT [Concomitant]
     Dosage: 8 PUF
  6. ETHAMBUTOL [Concomitant]
     Dosage: 1600 MG
  7. CLARITHROMYCIN [Concomitant]
     Dosage: 1000 MG
  8. ASPIRIN [Concomitant]
     Dosage: 81 MG

REACTIONS (3)
  - ATRIAL FIBRILLATION [None]
  - DYSPNOEA [None]
  - FATIGUE [None]
